FAERS Safety Report 8797739 (Version 2)
Quarter: 2012Q4

REPORT INFORMATION
  Report Type: Report from Study
  Country: NL (occurrence: NL)
  Receive Date: 20120919
  Receipt Date: 20120925
  Transmission Date: 20130627
  Serious: Yes (Death)
  Sender: FDA-Public Use
  Company Number: NL-ROCHE-1080163

PATIENT
  Age: 71 Year
  Sex: Female

DRUGS (11)
  1. PEGASYS [Suspect]
     Indication: MYELOPROLIFERATIVE DISORDER
     Route: 058
     Dates: end: 20120821
  2. SPIRONOLACTON [Concomitant]
     Route: 065
  3. PANTOZOL [Concomitant]
     Route: 065
  4. METOPROLOL [Concomitant]
     Route: 065
  5. ACETOSAL [Concomitant]
     Route: 065
  6. HYDROXYUREA [Concomitant]
     Route: 065
  7. METFORMIN [Concomitant]
     Route: 065
  8. LYRICA [Concomitant]
     Route: 065
  9. GLIMEPIRIDE [Concomitant]
     Route: 065
  10. FUROSEMIDE [Concomitant]
     Route: 065
  11. LIPITOR [Concomitant]
     Route: 065

REACTIONS (5)
  - Fatigue [Not Recovered/Not Resolved]
  - Feeling cold [Not Recovered/Not Resolved]
  - Fatigue [Fatal]
  - Disease progression [Fatal]
  - Cardiac failure [Fatal]
